FAERS Safety Report 24739494 (Version 2)
Quarter: 2024Q4

REPORT INFORMATION
  Report Type: Spontaneous
  Country: US (occurrence: US)
  Receive Date: 20241216
  Receipt Date: 20241223
  Transmission Date: 20250115
  Serious: Yes (Other)
  Sender: PFIZER
  Company Number: US-MLMSERVICE-20241203-PI271303-00072-1

PATIENT

DRUGS (3)
  1. BUPIVACAINE [Suspect]
     Active Substance: BUPIVACAINE
     Indication: Back pain
     Dosage: 30 MG/ML
     Route: 037
     Dates: start: 201605
  2. BUPIVACAINE [Suspect]
     Active Substance: BUPIVACAINE
     Dosage: 24 MG/ML
  3. FENTANYL [Concomitant]
     Active Substance: FENTANYL
     Indication: Back pain
     Dosage: 50 MCG/ML
     Route: 037
     Dates: start: 201605

REACTIONS (1)
  - Urinary retention [Unknown]

NARRATIVE: CASE EVENT DATE: 20160101
